FAERS Safety Report 8197165-5 (Version None)
Quarter: 2012Q1

REPORT INFORMATION
  Report Type: 
  Country: None (occurrence: None)
  Receive Date: 20120309
  Receipt Date: 20120228
  Transmission Date: 20120608
  Serious: Yes (Death, Life-Threatening, Hospitalization)
  Sender: FDA-Public Use
  Company Number: JP-AMGEN-JPNCT2010011959

PATIENT
  Age: 78 Year
  Sex: Male
  Weight: 56 kg

DRUGS (6)
  1. URINORM [Concomitant]
     Dosage: UNK
     Route: 048
  2. PANITUMUMAB [Suspect]
     Indication: COLORECTAL CANCER
     Dosage: 6 MG/KG, Q2WK
     Route: 041
     Dates: start: 20100715, end: 20101217
  3. COBATHROW [Concomitant]
     Dosage: UNK
     Route: 048
  4. NICHISTATE [Concomitant]
     Indication: CEREBRAL INFARCTION
     Dosage: 100 MG, BID
     Route: 048
  5. DIOVAN [Concomitant]
     Indication: HYPERTENSION
     Dosage: 80 MG, BID
     Route: 048
  6. NIFEDIPINE [Concomitant]
     Dosage: 20 MG, TID
     Route: 048

REACTIONS (5)
  - DERMATITIS ACNEIFORM [None]
  - CARDIAC FAILURE [None]
  - INTERSTITIAL LUNG DISEASE [None]
  - HYPOMAGNESAEMIA [None]
  - PARONYCHIA [None]
